FAERS Safety Report 7814045-2 (Version None)
Quarter: 2011Q4

REPORT INFORMATION
  Report Type: 
  Country: None (occurrence: None)
  Receive Date: 20111012
  Receipt Date: 20111003
  Transmission Date: 20120403
  Serious: Yes (Hospitalization)
  Sender: FDA-Public Use
  Company Number: 2010001971

PATIENT
  Age: 62 Year
  Sex: Male

DRUGS (4)
  1. TARCEVA [Suspect]
  2. TARCEVA [Suspect]
     Indication: LUNG CARCINOMA CELL TYPE UNSPECIFIED STAGE 0
     Dosage: 100 MG, UID/QD, ORAL
     Route: 048
     Dates: start: 20091212
  3. TARCEVA [Suspect]
     Indication: LUNG CARCINOMA CELL TYPE UNSPECIFIED STAGE 0
     Dosage: 100 MG, UID/QD, ORAL
     Route: 048
     Dates: start: 20091216
  4. KETOPROFEN [Concomitant]

REACTIONS (6)
  - INTERVERTEBRAL DISC PROTRUSION [None]
  - NERVE ROOT COMPRESSION [None]
  - DERMATITIS ACNEIFORM [None]
  - MUSCLE SPASMS [None]
  - DIARRHOEA [None]
  - BACK INJURY [None]
